FAERS Safety Report 5786325-6 (Version None)
Quarter: 2008Q2

REPORT INFORMATION
  Report Type: 
  Country: None (occurrence: None)
  Receive Date: 20080624
  Receipt Date: 20080108
  Transmission Date: 20081010
  Serious: No
  Sender: FDA-Public Use
  Company Number: US-ASTRAZENECA-2007UW18198

PATIENT
  Age: 63 Year
  Sex: Female
  Weight: 62.3 kg

DRUGS (8)
  1. PULMICORT RESPULES [Suspect]
     Indication: EMPHYSEMA
     Dosage: 0.5 MG/DL BID
     Route: 055
     Dates: start: 20070201
  2. PULMICORT RESPULES [Suspect]
     Dosage: 0.5 MG/DL BID
     Route: 055
     Dates: start: 20070702
  3. SPIRIVA [Concomitant]
  4. FLORADIL [Concomitant]
  5. TOPROL-XL [Concomitant]
  6. PRAVACHOL [Concomitant]
  7. ESTRADIOL [Concomitant]
  8. ALBUTEROL [Concomitant]

REACTIONS (2)
  - ARTHRALGIA [None]
  - MUSCLE SPASMS [None]
